FAERS Safety Report 9942684 (Version 1)
Quarter: 2014Q1

REPORT INFORMATION
  Report Type: Report from Study
  Country: US (occurrence: US)
  Receive Date: 20140303
  Receipt Date: 20140303
  Transmission Date: 20141002
  Serious: No
  Sender: FDA-Public Use
  Company Number: US-ABBVIE-13P-163-1045288-00

PATIENT
  Age: 82 Year
  Sex: Female
  Weight: 82.63 kg

DRUGS (12)
  1. HUMIRA [Suspect]
     Indication: RHEUMATOID ARTHRITIS
     Route: 058
     Dates: start: 200903, end: 20130103
  2. METHOTREXATE [Concomitant]
     Indication: RHEUMATOID ARTHRITIS
  3. FOLIC ACID [Concomitant]
     Indication: VITAMIN SUPPLEMENTATION
  4. SPIRONOLACTONE [Concomitant]
     Indication: HYPERTENSION
     Dosage: TWO 25MG TABLETS DAILY
  5. LEVOTHYROXINE [Concomitant]
     Indication: PRODUCT USED FOR UNKNOWN INDICATION
  6. NORVASC [Concomitant]
     Indication: HYPERTENSION
  7. DITROPAN XL [Concomitant]
     Indication: URINARY INCONTINENCE
  8. LOVASTATIN [Concomitant]
     Indication: BLOOD CHOLESTEROL INCREASED
  9. TYLENOL [Concomitant]
     Indication: ARTHRALGIA
  10. VITAMIN C [Concomitant]
     Indication: PRODUCT USED FOR UNKNOWN INDICATION
  11. VITAMIN D [Concomitant]
     Indication: PRODUCT USED FOR UNKNOWN INDICATION
  12. ULTRAM [Concomitant]
     Indication: INTERVERTEBRAL DISC PROTRUSION
     Dosage: 50MG PRN BACK PAIN

REACTIONS (7)
  - Drug dose omission [Recovered/Resolved]
  - Rheumatoid arthritis [Not Recovered/Not Resolved]
  - Joint swelling [Not Recovered/Not Resolved]
  - Arthralgia [Not Recovered/Not Resolved]
  - Gait disturbance [Not Recovered/Not Resolved]
  - Arthropathy [Not Recovered/Not Resolved]
  - Depressed mood [Not Recovered/Not Resolved]
